FAERS Safety Report 4815044-5 (Version None)
Quarter: 2005Q4

REPORT INFORMATION
  Report Type: 
  Country: None (occurrence: None)
  Receive Date: 20051026
  Receipt Date: 20051006
  Transmission Date: 20060501
  Serious: Yes (Hospitalization)
  Sender: FDA-Public Use
  Company Number: FR_051007267

PATIENT
  Age: 61 Year
  Sex: Male
  Weight: 60 kg

DRUGS (9)
  1. GEMZAR [Suspect]
     Indication: PANCREATIC CARCINOMA METASTATIC
     Dosage: 1000 MG/M2/1 OTHER
     Route: 042
     Dates: start: 20050711
  2. OXALIPLATIN [Concomitant]
     Route: 042
  3. ENALAPRIL MALEATE [Concomitant]
  4. RAMIPRIL [Concomitant]
  5. SIMVASTATIN [Concomitant]
  6. MORPHINE SULFATE [Concomitant]
  7. MORPHINE SULFATE [Concomitant]
  8. PAROXETINE HYDROCHLORIDE [Concomitant]
  9. STILLNOX               (ZOLPIDEM TARTRATE) [Concomitant]

REACTIONS (7)
  - BACK PAIN [None]
  - BRAIN SCAN ABNORMAL [None]
  - HEADACHE [None]
  - HYPERTHERMIA [None]
  - LARYNGOSPASM [None]
  - OEDEMA PERIPHERAL [None]
  - VERTIGO [None]
